FAERS Safety Report 24278698 (Version 1)
Quarter: 2024Q3

REPORT INFORMATION
  Report Type: Spontaneous
  Country: US (occurrence: None)
  Receive Date: 20240830
  Receipt Date: 20240830
  Transmission Date: 20241017
  Serious: No
  Sender: Public
  Company Number: None

PATIENT
  Age: 43 Year
  Sex: Male

DRUGS (1)
  1. SUCRALFATE [Suspect]
     Active Substance: SUCRALFATE

REACTIONS (5)
  - Diarrhoea [None]
  - Dyspepsia [None]
  - Nausea [None]
  - Abdominal distension [None]
  - Abdominal distension [None]

NARRATIVE: CASE EVENT DATE: 20240830
